FAERS Safety Report 7594281-3 (Version None)
Quarter: 2011Q3

REPORT INFORMATION
  Report Type: 
  Country: None (occurrence: None)
  Receive Date: 20110706
  Receipt Date: 20110627
  Transmission Date: 20111222
  Serious: Yes (Other)
  Sender: FDA-Public Use
  Company Number: BR-ASTRAZENECA-2010SE58254

PATIENT
  Age: 59 Year
  Sex: Female

DRUGS (1)
  1. ATACAND [Suspect]
     Indication: HYPERTENSION
     Route: 048
     Dates: start: 20100601, end: 20101101

REACTIONS (3)
  - MALAISE [None]
  - HYPERTENSION [None]
  - ISCHAEMIC STROKE [None]
